FAERS Safety Report 8999972 (Version 2)
Quarter: 2013Q1

REPORT INFORMATION
  Report Type: Spontaneous
  Country: NL (occurrence: NL)
  Receive Date: 20130102
  Receipt Date: 20130123
  Transmission Date: 20140127
  Serious: Yes (Hospitalization)
  Sender: FDA-Public Use
  Company Number: NL-ELI_LILLY_AND_COMPANY-NL201212008147

PATIENT
  Age: 44 Year
  Sex: Female

DRUGS (1)
  1. ALIMTA [Suspect]
     Indication: NON-SMALL CELL LUNG CANCER
     Dosage: 900 MG, UNK
     Dates: start: 20121211

REACTIONS (4)
  - C-reactive protein increased [Recovering/Resolving]
  - Gastrointestinal disorder [Unknown]
  - Abdominal pain lower [Unknown]
  - Hypokalaemia [Unknown]
